FAERS Safety Report 9230036 (Version 1)
Quarter: 2013Q2

REPORT INFORMATION
  Report Type: Spontaneous
  Country: FR (occurrence: FR)
  Receive Date: 20130415
  Receipt Date: 20130415
  Transmission Date: 20140414
  Serious: Yes (Hospitalization, Other)
  Sender: FDA-Public Use
  Company Number: FR-JNJFOC-20130404524

PATIENT
  Age: 86 Year
  Sex: Female

DRUGS (5)
  1. XARELTO [Suspect]
     Indication: ISCHAEMIC STROKE
     Route: 048
     Dates: start: 20130304, end: 20130308
  2. SOTALEX [Concomitant]
     Route: 065
  3. DEROXAT [Concomitant]
     Route: 048
     Dates: start: 20130222, end: 20130305
  4. INEXIUM [Concomitant]
     Route: 065
  5. TAHOR [Concomitant]
     Route: 065
     Dates: start: 20130304, end: 20130305

REACTIONS (1)
  - Rash [Recovered/Resolved]
